FAERS Safety Report 15309263 (Version 2)
Quarter: 2018Q4

REPORT INFORMATION
  Report Type: Spontaneous
  Country: CA (occurrence: CA)
  Receive Date: 20180823
  Receipt Date: 20180921
  Transmission Date: 20190204
  Serious: No
  Sender: FDA-Public Use
  Company Number: CA-IGSA-SR10005708

PATIENT
  Sex: Male

DRUGS (2)
  1. ALBUMIN (HUMAN) [Suspect]
     Active Substance: ALBUMIN HUMAN
     Indication: INTESTINAL PERFORATION
     Dosage: UNK
     Dates: start: 20171203, end: 20171203
  2. ALBUMIN (HUMAN) [Suspect]
     Active Substance: ALBUMIN HUMAN
     Indication: FLUID RETENTION

REACTIONS (1)
  - Febrile nonhaemolytic transfusion reaction [Unknown]

NARRATIVE: CASE EVENT DATE: 20171203
